FAERS Safety Report 8187203-8 (Version None)
Quarter: 2012Q1

REPORT INFORMATION
  Report Type: 
  Country: None (occurrence: None)
  Receive Date: 20120216
  Receipt Date: 20111114
  Transmission Date: 20120608
  Serious: Yes (Hospitalization)
  Sender: FDA-Public Use
  Company Number: 20111013CINRY2366

PATIENT
  Age: 32 Year
  Sex: Female
  Weight: 102.0593 kg

DRUGS (6)
  1. CINRYZE [Suspect]
     Indication: HEREDITARY ANGIOEDEMA
     Dosage: (1500 IU, 2 IN 1 WK), INTRAVENOUS
     Route: 042
     Dates: start: 20090710
  2. PRO AIR (PROCATEROL HYDROCHLORIDE) [Concomitant]
  3. ALBUTEROL [Concomitant]
  4. NEXIUM [Concomitant]
  5. SYMBICORT (BUDESONIDE W/FORMOTEROL FUMARATE) (AEROSOL FOR INHALATION) [Concomitant]
  6. SINGULAIR [Concomitant]

REACTIONS (6)
  - HEREDITARY ANGIOEDEMA [None]
  - MUSCULOSKELETAL STIFFNESS [None]
  - VAGINAL HAEMORRHAGE [None]
  - PAIN [None]
  - OFF LABEL USE [None]
  - THERAPY REGIMEN CHANGED [None]
